FAERS Safety Report 7442640-1 (Version None)
Quarter: 2011Q2

REPORT INFORMATION
  Report Type: 
  Country: None (occurrence: None)
  Receive Date: 20110426
  Receipt Date: 20110426
  Transmission Date: 20111010
  Serious: Yes (Hospitalization)
  Sender: FDA-Public Use
  Company Number: None

PATIENT
  Sex: Male
  Weight: 131.8 kg

DRUGS (2)
  1. ETOPOSIDE [Suspect]
     Dosage: 1214 MG
  2. CISPLATIN [Suspect]
     Dosage: 387 MG

REACTIONS (5)
  - COUGH [None]
  - ANAEMIA [None]
  - MYOCARDIAL INFARCTION [None]
  - DEVICE RELATED INFECTION [None]
  - WEIGHT INCREASED [None]
